FAERS Safety Report 12610205 (Version 1)
Quarter: 2016Q3

REPORT INFORMATION
  Report Type: Spontaneous
  Country: US (occurrence: US)
  Receive Date: 20160801
  Receipt Date: 20160801
  Transmission Date: 20161109
  Serious: No
  Sender: FDA-Public Use
  Company Number: US-BIOGEN-2016BI00267839

PATIENT
  Sex: Female

DRUGS (3)
  1. PLEGRIDY [Suspect]
     Active Substance: PEGINTERFERON BETA-1A
     Indication: MULTIPLE SCLEROSIS
     Route: 065
     Dates: start: 20160318
  2. TECFIDERA [Suspect]
     Active Substance: DIMETHYL FUMARATE
     Indication: MULTIPLE SCLEROSIS
     Route: 065
     Dates: start: 20131206, end: 20160415
  3. TECFIDERA [Suspect]
     Active Substance: DIMETHYL FUMARATE
     Dates: start: 20131206

REACTIONS (6)
  - Influenza like illness [Unknown]
  - Urinary tract infection [Not Recovered/Not Resolved]
  - Injection site reaction [Unknown]
  - Fatigue [Unknown]
  - Rash macular [Unknown]
  - Myalgia [Unknown]
